FAERS Safety Report 6991326-6 (Version None)
Quarter: 2010Q3

REPORT INFORMATION
  Report Type: 
  Country: None (occurrence: None)
  Receive Date: 20100916
  Receipt Date: 20081031
  Transmission Date: 20110219
  Serious: No
  Sender: FDA-Public Use
  Company Number: US-WYE-H06092308

PATIENT
  Sex: Female
  Weight: 56.75 kg

DRUGS (8)
  1. PREMARIN [Suspect]
     Route: 048
     Dates: start: 19900101
  2. THYROID TAB [Concomitant]
     Dosage: 40 MG
  3. PERCOCET [Concomitant]
     Dosage: PRN
  4. NEURONTIN [Concomitant]
     Indication: MUSCLE INJURY
     Dosage: 600 UNITS QID
  5. NEURONTIN [Concomitant]
     Indication: NERVE INJURY
  6. VICODIN [Concomitant]
     Dosage: 200 MG X 2 QID
  7. ZESTRIL [Concomitant]
     Indication: HYPERTENSION
     Dosage: 40 MG
  8. HYDROCHLOROTHIAZIDE [Concomitant]
     Dosage: 5 MG

REACTIONS (5)
  - DRUG INEFFECTIVE [None]
  - FATIGUE [None]
  - FEELING ABNORMAL [None]
  - HEADACHE [None]
  - HOT FLUSH [None]
